FAERS Safety Report 5318324-2 (Version None)
Quarter: 2007Q2

REPORT INFORMATION
  Report Type: 
  Country: None (occurrence: None)
  Receive Date: 20070507
  Receipt Date: 20070426
  Transmission Date: 20071010
  Serious: Yes (Other)
  Sender: FDA-Public Use
  Company Number: AU-SANOFI-SYNTHELABO-A01200704630

PATIENT
  Sex: Female

DRUGS (1)
  1. STILNOX [Suspect]
     Indication: OVERDOSE
     Dosage: 20-30 TABLETS AT A TIME
     Route: 048

REACTIONS (5)
  - ABNORMAL BEHAVIOUR [None]
  - HISTRIONIC PERSONALITY DISORDER [None]
  - INTENTIONAL OVERDOSE [None]
  - MENTAL DISORDER DUE TO A GENERAL MEDICAL CONDITION [None]
  - OBSESSIVE-COMPULSIVE DISORDER [None]
